FAERS Safety Report 11875701 (Version 1)
Quarter: 2015Q4

REPORT INFORMATION
  Report Type: Spontaneous
  Country: FR (occurrence: FR)
  Receive Date: 20151229
  Receipt Date: 20151229
  Transmission Date: 20160305
  Serious: Yes (Hospitalization)
  Sender: FDA-Public Use
  Company Number: FR-SA-2015SA216854

PATIENT
  Age: 62 Year
  Sex: Male

DRUGS (12)
  1. TRIATEC [Suspect]
     Active Substance: RAMIPRIL
     Route: 048
     Dates: start: 20150529
  2. PARACETAMOL [Suspect]
     Active Substance: ACETAMINOPHEN
     Route: 048
     Dates: start: 20150529
  3. TAHOR [Suspect]
     Active Substance: ATORVASTATIN CALCIUM
     Route: 048
     Dates: start: 20150529
  4. SERESTA [Suspect]
     Active Substance: OXAZEPAM
     Indication: ANXIETY
     Route: 048
     Dates: start: 20150529, end: 201506
  5. DIPROSONE [Concomitant]
     Active Substance: BETAMETHASONE DIPROPIONATE
  6. KARDEGIC [Suspect]
     Active Substance: ASPIRIN LYSINE
     Route: 048
     Dates: start: 20150528
  7. BECILAN [Suspect]
     Active Substance: PYRIDOXINE
     Route: 048
     Dates: start: 20150529, end: 20150530
  8. IOMERON [Suspect]
     Active Substance: IOMEPROL
     Route: 042
     Dates: start: 20150529, end: 20150529
  9. LOVENOX [Suspect]
     Active Substance: ENOXAPARIN SODIUM
     Route: 058
     Dates: start: 20150601
  10. EUPRESSYL [Suspect]
     Active Substance: URAPIDIL
     Indication: HYPERTENSION
     Route: 048
     Dates: start: 20150529
  11. AMLOR [Suspect]
     Active Substance: AMLODIPINE BESYLATE
     Indication: HYPERTENSION
     Route: 048
     Dates: start: 20150601
  12. BEVITINE [Suspect]
     Active Substance: THIAMINE
     Route: 048
     Dates: start: 20150529, end: 20150530

REACTIONS (1)
  - Toxic skin eruption [Recovered/Resolved]

NARRATIVE: CASE EVENT DATE: 20150601
